FAERS Safety Report 15096212 (Version 1)
Quarter: 2018Q2

REPORT INFORMATION
  Report Type: Spontaneous
  Country: US (occurrence: US)
  Receive Date: 20180609
  Receipt Date: 20180609
  Transmission Date: 20180711
  Serious: No
  Sender: FDA-Public Use
  Company Number: None

PATIENT
  Age: 59 Week
  Sex: Female
  Weight: 77.85 kg

DRUGS (5)
  1. PROPRANOL [Concomitant]
     Active Substance: PROPRANOLOL HYDROCHLORIDE
  2. D 3 [Concomitant]
  3. NAPRONEN [Concomitant]
  4. FLUOXETINE [Concomitant]
     Active Substance: FLUOXETINE HYDROCHLORIDE
  5. HYDROXYCHLOROQUINE SULFATE. [Suspect]
     Active Substance: HYDROXYCHLOROQUINE SULFATE
     Indication: RHEUMATOID ARTHRITIS
     Dosage: ?          QUANTITY:2 DF DOSAGE FORM;?
     Route: 048
     Dates: start: 20180423, end: 20180604

REACTIONS (1)
  - Photopsia [None]

NARRATIVE: CASE EVENT DATE: 20180501
